FAERS Safety Report 10046993 (Version 2)
Quarter: 2014Q1

REPORT INFORMATION
  Report Type: Spontaneous
  Country: US (occurrence: US)
  Receive Date: 20140331
  Receipt Date: 20140331
  Transmission Date: 20141002
  Serious: Yes (Disabling)
  Sender: FDA-Public Use
  Company Number: US-GE HEALTHCARE MEDICAL DIAGNOSTICS-OSCN-PR-0905S-0235

PATIENT
  Age: 42 Year
  Sex: Female

DRUGS (7)
  1. OMNISCAN [Suspect]
     Indication: BILE DUCT STENOSIS
     Route: 042
     Dates: start: 20020719, end: 20020719
  2. OMNISCAN [Suspect]
     Indication: BACK PAIN
     Route: 042
     Dates: start: 20020729, end: 20020729
  3. OMNISCAN [Suspect]
     Indication: MEDIASTINAL MASS
     Route: 042
     Dates: start: 20020805, end: 20020805
  4. OMNISCAN [Suspect]
     Indication: ARTHRALGIA
     Route: 042
     Dates: start: 20020806, end: 20020806
  5. OMNISCAN [Suspect]
     Indication: RENAL TRANSPLANT
     Route: 013
     Dates: start: 20021112, end: 20021112
  6. OMNISCAN [Suspect]
     Indication: PRODUCT USED FOR UNKNOWN INDICATION
     Route: 042
     Dates: start: 20030719, end: 20030719
  7. OMNISCAN [Suspect]
     Indication: PRODUCT USED FOR UNKNOWN INDICATION
     Route: 042
     Dates: start: 20041112, end: 20041112

REACTIONS (1)
  - Nephrogenic systemic fibrosis [Not Recovered/Not Resolved]
